FAERS Safety Report 9665740 (Version 1)
Quarter: 2013Q4

REPORT INFORMATION
  Report Type: Spontaneous
  Country: US (occurrence: None)
  Receive Date: 20131101
  Receipt Date: 20131101
  Transmission Date: 20140711
  Serious: No
  Sender: FDA-Public Use
  Company Number: None

PATIENT
  Age: 9 Year
  Sex: Female
  Weight: 43.09 kg

DRUGS (1)
  1. ALBUTEROL [Suspect]
     Indication: ASTHMA
     Dosage: 1 VIAL
     Route: 055
     Dates: start: 20130924, end: 20131016

REACTIONS (3)
  - Oxygen saturation decreased [None]
  - Poor quality drug administered [None]
  - Product quality issue [None]
